FAERS Safety Report 9853965 (Version 11)
Quarter: 2018Q4

REPORT INFORMATION
  Report Type: Spontaneous
  Country: US (occurrence: US)
  Receive Date: 20140129
  Receipt Date: 20181212
  Transmission Date: 20190205
  Serious: Yes (Other)
  Sender: FDA-Public Use
  Company Number: US-PFIZER INC-2013307200

PATIENT
  Age: 65 Year
  Sex: Female
  Weight: 70 kg

DRUGS (54)
  1. RUBRAMIN [Concomitant]
     Active Substance: CYANOCOBALAMIN
     Dosage: UNK
  2. MVI 3 [Concomitant]
     Dosage: UNK
  3. NASOCORT [Concomitant]
     Active Substance: BUDESONIDE
     Dosage: UNK
  4. REFRESH PLUS [Concomitant]
     Active Substance: CARBOXYMETHYLCELLULOSE SODIUM
     Dosage: UNK
  5. VITAMIN D [Concomitant]
     Active Substance: CHOLECALCIFEROL
     Dosage: UNK
  6. BACTROBAN [Concomitant]
     Active Substance: MUPIROCIN\MUPIROCIN CALCIUM
     Dosage: UNK
  7. RETIN-A [Concomitant]
     Active Substance: TRETINOIN
     Dosage: UNK
  8. ENBREL [Suspect]
     Active Substance: ETANERCEPT
     Dosage: UNK
  9. LYRICA [Suspect]
     Active Substance: PREGABALIN
     Dosage: 100 MG, 1X/DAY (AT BEDTIME)
     Route: 048
  10. TAMIFLU [Concomitant]
     Active Substance: OSELTAMIVIR PHOSPHATE
     Dosage: UNK
  11. SYNTHROID [Concomitant]
     Active Substance: LEVOTHYROXINE SODIUM
     Dosage: UNK
  12. TAZACT [Concomitant]
     Active Substance: PIPERACILLIN SODIUM\TAZOBACTAM SODIUM
     Dosage: UNK
  13. MOBIC [Concomitant]
     Active Substance: MELOXICAM
     Dosage: 7.5 MG, UNK
  14. PROTOPIC [Concomitant]
     Active Substance: TACROLIMUS
     Dosage: UNK
  15. PNEUMOCOCCAL VACCINE POLYVALENT NOS [Concomitant]
     Active Substance: PNEUMOCOCCAL VACCINE POLYVALENT
     Dosage: UNK
     Dates: start: 20141114
  16. HYDROCORTISONE. [Concomitant]
     Active Substance: HYDROCORTISONE
     Dosage: UNK
  17. DELTASONE [Concomitant]
     Active Substance: PREDNISONE
     Dosage: UNK
  18. ANTIVERT [Suspect]
     Active Substance: MECLIZINE HYDROCHLORIDE
     Indication: DIZZINESS
     Dosage: 12.5 MG, 3X/DAY(AS NECESSARY)
     Route: 048
  19. RITUXAN [Suspect]
     Active Substance: RITUXIMAB
     Dosage: UNK
  20. NEXIUM [Concomitant]
     Active Substance: ESOMEPRAZOLE MAGNESIUM
     Dosage: 40 MG, UNK
  21. ZOFRAN [Concomitant]
     Active Substance: ONDANSETRON HYDROCHLORIDE
     Dosage: 4 MG, UNK
  22. VITAMIN D3 [Concomitant]
     Active Substance: CHOLECALCIFEROL
     Dosage: UNK
  23. ZINC. [Concomitant]
     Active Substance: ZINC
     Dosage: UNK
  24. ZANTAC 75 [Concomitant]
     Active Substance: RANITIDINE HYDROCHLORIDE
     Dosage: UNK
  25. GEODON [Suspect]
     Active Substance: ZIPRASIDONE HYDROCHLORIDE\ZIPRASIDONE MESYLATE
     Dosage: UNK
  26. LAMICTAL [Concomitant]
     Active Substance: LAMOTRIGINE
     Dosage: 150 MG, UNK
  27. RESTASIS [Concomitant]
     Active Substance: CYCLOSPORINE
     Dosage: UNK
  28. ZANAFLEX [Concomitant]
     Active Substance: TIZANIDINE HYDROCHLORIDE
     Dosage: 2 MG, UNK
  29. SIMPONI [Suspect]
     Active Substance: GOLIMUMAB
     Dosage: UNK
  30. ZYRTEC [Suspect]
     Active Substance: CETIRIZINE HYDROCHLORIDE
     Dosage: 10 MG, 1X/DAY (AS NEEDDED)
  31. FOLIC ACID. [Concomitant]
     Active Substance: FOLIC ACID
     Dosage: UNK
  32. FOSAMAX [Concomitant]
     Active Substance: ALENDRONATE SODIUM
     Dosage: UNK
  33. VITAMIN D2 [Concomitant]
     Active Substance: ERGOCALCIFEROL
     Dosage: UNK
  34. MVI [Concomitant]
     Active Substance: VITAMINS
     Dosage: UNK
  35. CALCIUM CARBONATE. [Concomitant]
     Active Substance: CALCIUM CARBONATE
     Dosage: UNK
  36. XANAX [Suspect]
     Active Substance: ALPRAZOLAM
     Dosage: 0.5 MG, TID, 1 TABLET AS NEEDED
     Route: 048
  37. ZOLOFT [Concomitant]
     Active Substance: SERTRALINE HYDROCHLORIDE
     Dosage: UNK
  38. PREVACID [Concomitant]
     Active Substance: LANSOPRAZOLE
     Dosage: UNK
  39. ALBUTEROL. [Concomitant]
     Active Substance: ALBUTEROL
     Dosage: UNK
  40. FLEXERIL [Concomitant]
     Active Substance: CYCLOBENZAPRINE HYDROCHLORIDE
     Dosage: UNK
  41. SYSTANE (HYPROMELLOSE 2910 (4000 MPA.S)) [Concomitant]
     Active Substance: HYPROMELLOSE 2910 (4000 MPA.S)
     Dosage: UNK
  42. ZADITOR [Concomitant]
     Active Substance: KETOTIFEN FUMARATE
     Dosage: UNK
  43. ACTEMRA [Suspect]
     Active Substance: TOCILIZUMAB
     Dosage: UNK
  44. SINGULAIR [Concomitant]
     Active Substance: MONTELUKAST SODIUM
     Dosage: UNK
  45. ADVAIR HFA [Concomitant]
     Active Substance: FLUTICASONE PROPIONATE\SALMETEROL XINAFOATE
     Dosage: UNK
  46. VICODIN [Concomitant]
     Active Substance: ACETAMINOPHEN\HYDROCODONE BITARTRATE
     Dosage: UNK
  47. PHENERGAN [Concomitant]
     Active Substance: PROMETHAZINE HYDROCHLORIDE
     Dosage: UNK
  48. ISOPTO TEARS [Concomitant]
     Active Substance: HYPROMELLOSE 2910 (4000 MPA.S)
     Dosage: UNK
  49. INFLUENZA VACCINE [Concomitant]
     Active Substance: INFLUENZA VIRUS VACCINE
     Dosage: UNK
     Dates: start: 20140214
  50. NORCO [Concomitant]
     Active Substance: ACETAMINOPHEN\HYDROCODONE BITARTRATE
     Dosage: UNK
     Dates: start: 20161121
  51. VITAMIN B12 [Concomitant]
     Active Substance: CYANOCOBALAMIN
     Dosage: UNK
  52. TYLENOL [Concomitant]
     Active Substance: ACETAMINOPHEN
     Dosage: UNK
  53. CELEXA [Concomitant]
     Active Substance: CITALOPRAM HYDROBROMIDE
     Dosage: UNK
  54. MEDIQUE DIAMODE [Concomitant]
     Active Substance: LOPERAMIDE HYDROCHLORIDE
     Dosage: 2 MG, UNK

REACTIONS (53)
  - Dry skin [Unknown]
  - Appetite disorder [Unknown]
  - Pruritus [Unknown]
  - Abdominal pain [Unknown]
  - Hypoaesthesia [Unknown]
  - Vomiting [Unknown]
  - Oedema [Unknown]
  - Erythema [Unknown]
  - Skin disorder [Unknown]
  - Dysphagia [Unknown]
  - Pain [Unknown]
  - Wheezing [Unknown]
  - Thinking abnormal [Unknown]
  - Abdominal discomfort [Unknown]
  - Arthritis infective [Unknown]
  - Dyspnoea [Unknown]
  - Gait disturbance [Unknown]
  - Contusion [Unknown]
  - Blister [Unknown]
  - Sjogren^s syndrome [Unknown]
  - Skin warm [Unknown]
  - Ear pain [Unknown]
  - Sneezing [Unknown]
  - Constipation [Unknown]
  - Dizziness [Unknown]
  - Asthenia [Unknown]
  - Drug hypersensitivity [Unknown]
  - Headache [Unknown]
  - Arthralgia [Unknown]
  - Haemorrhagic diathesis [Unknown]
  - Rheumatoid arthritis [Unknown]
  - Wound [Unknown]
  - Tenderness [Unknown]
  - Chills [Unknown]
  - Rhinorrhoea [Unknown]
  - Visual impairment [Unknown]
  - Joint swelling [Unknown]
  - Neck pain [Unknown]
  - Musculoskeletal stiffness [Unknown]
  - Hallucination [Unknown]
  - Interstitial lung disease [Unknown]
  - Drug intolerance [Unknown]
  - Fatigue [Unknown]
  - Myalgia [Unknown]
  - Back pain [Unknown]
  - Dysphoria [Unknown]
  - Rash [Unknown]
  - Stridor [Unknown]
  - Osteoarthritis [Unknown]
  - Oral pain [Unknown]
  - Photophobia [Unknown]
  - Diarrhoea [Unknown]
  - Nausea [Unknown]

NARRATIVE: CASE EVENT DATE: 20110111
